FAERS Safety Report 16228778 (Version 1)
Quarter: 2019Q2

REPORT INFORMATION
  Report Type: Report from Study
  Country: HN (occurrence: HN)
  Receive Date: 20190423
  Receipt Date: 20190423
  Transmission Date: 20190711
  Serious: Yes (Hospitalization)
  Sender: FDA-Public Use
  Company Number: PHHY2019HN081632

PATIENT
  Age: 65 Year
  Sex: Female
  Weight: 56.69 kg

DRUGS (1)
  1. DIOVAN [Suspect]
     Active Substance: VALSARTAN
     Indication: HYPERTENSION
     Dosage: 320 MG, QD
     Route: 065
     Dates: start: 20180904

REACTIONS (5)
  - Thyroid disorder [Unknown]
  - Blood potassium decreased [Unknown]
  - Dysstasia [Unknown]
  - Visual impairment [Unknown]
  - Head discomfort [Unknown]

NARRATIVE: CASE EVENT DATE: 201809
